FAERS Safety Report 13156588 (Version 1)
Quarter: 2017Q1

REPORT INFORMATION
  Report Type: Spontaneous
  Country: US (occurrence: US)
  Receive Date: 20170126
  Receipt Date: 20170126
  Transmission Date: 20170428
  Serious: No
  Sender: FDA-Public Use
  Company Number: US-PFIZER INC-2017033559

PATIENT
  Age: 71 Year
  Sex: Female

DRUGS (1)
  1. PRISTIQ EXTENDED-RELEASE [Suspect]
     Active Substance: DESVENLAFAXINE SUCCINATE
     Dosage: UNK

REACTIONS (13)
  - Heart rate increased [Unknown]
  - Irritability [Unknown]
  - Insomnia [Unknown]
  - Anger [Unknown]
  - Psychomotor hyperactivity [Unknown]
  - Decreased activity [Unknown]
  - Logorrhoea [Unknown]
  - Fatigue [Unknown]
  - Nervousness [Unknown]
  - Nightmare [Unknown]
  - Visual impairment [Unknown]
  - Nausea [Unknown]
  - Panic attack [Unknown]
